FAERS Safety Report 21299341 (Version 1)
Quarter: 2022Q3

REPORT INFORMATION
  Report Type: Spontaneous
  Country: CN (occurrence: CN)
  Receive Date: 20220906
  Receipt Date: 20220906
  Transmission Date: 20221027
  Serious: Yes (Other)
  Sender: FDA-Public Use
  Company Number: CN-JUBILANT CADISTA PHARMACEUTICALS-2022JUB00239

PATIENT
  Age: 70 Year
  Sex: Male

DRUGS (1)
  1. CARBAMAZEPINE [Suspect]
     Active Substance: CARBAMAZEPINE
     Indication: Trigeminal neuralgia
     Dosage: 100 MG, 2X/DAY
     Route: 048

REACTIONS (1)
  - Follicular mucinosis [Recovered/Resolved]
